FAERS Safety Report 5519676-0 (Version None)
Quarter: 2007Q4

REPORT INFORMATION
  Report Type: 
  Country: None (occurrence: None)
  Receive Date: 20071116
  Receipt Date: 20071113
  Transmission Date: 20080405
  Serious: Yes (Life-Threatening)
  Sender: FDA-Public Use
  Company Number: JP-JNJFOC-20071105107

PATIENT
  Age: 54 Year
  Sex: Male

DRUGS (3)
  1. ITRIZOLE [Suspect]
     Indication: FUNGAL INFECTION
     Route: 041
  2. ITRIZOLE [Suspect]
     Route: 048
  3. VALSARTAN [Concomitant]
     Route: 048

REACTIONS (1)
  - INTERSTITIAL LUNG DISEASE [None]
